FAERS Safety Report 26169655 (Version 1)
Quarter: 2025Q4

REPORT INFORMATION
  Report Type: Report from Study
  Country: CA (occurrence: CA)
  Receive Date: 20251217
  Receipt Date: 20251217
  Transmission Date: 20260118
  Serious: Yes (Other)
  Sender: ABBVIE
  Company Number: CA-ABBVIE-6588269

PATIENT
  Age: 44 Year
  Sex: Female

DRUGS (2)
  1. RINVOQ [Suspect]
     Active Substance: UPADACITINIB
     Indication: Rheumatoid arthritis
     Route: 048
     Dates: end: 202507
  2. RINVOQ [Suspect]
     Active Substance: UPADACITINIB
     Indication: Rheumatoid arthritis
     Dosage: RESTARTED
     Route: 048
     Dates: start: 2025

REACTIONS (8)
  - Hysterectomy [Unknown]
  - Incision site discharge [Unknown]
  - Postoperative wound infection [Unknown]
  - Skin injury [Unknown]
  - Vomiting [Unknown]
  - Fungal infection [Unknown]
  - Insomnia [Unknown]
  - Gait disturbance [Unknown]

NARRATIVE: CASE EVENT DATE: 20250101
